FAERS Safety Report 26045707 (Version 1)
Quarter: 2025Q4

REPORT INFORMATION
  Report Type: Spontaneous
  Country: US (occurrence: None)
  Receive Date: 20251113
  Receipt Date: 20251113
  Transmission Date: 20260117
  Serious: Yes (Life-Threatening)
  Sender: FDA-CTU
  Company Number: None

PATIENT
  Age: 77 Year
  Sex: Female

DRUGS (1)
  1. HYDRALAZINE HYDROCHLORIDE [Suspect]
     Active Substance: HYDRALAZINE HYDROCHLORIDE
     Dosage: 10 MG TABLET  1 TID ?

REACTIONS (5)
  - Product prescribing error [None]
  - Drug dispensed to wrong patient [None]
  - Adverse drug reaction [None]
  - Illness [None]
  - Emotional distress [None]
